FAERS Safety Report 7522578-1 (Version None)
Quarter: 2011Q2

REPORT INFORMATION
  Report Type: 
  Country: None (occurrence: None)
  Receive Date: 20110603
  Receipt Date: 20110526
  Transmission Date: 20111010
  Serious: Yes (Other)
  Sender: FDA-Public Use
  Company Number: FR-ROCHE-779725

PATIENT
  Sex: Female

DRUGS (4)
  1. AVASTIN [Suspect]
     Indication: BREAST CANCER
     Dosage: DOSE: 25 MG/ML,SOLUTION FOR INFUSION.
     Route: 042
     Dates: start: 20100701, end: 20110415
  2. TAMOXIFEN CITRATE [Suspect]
     Indication: BREAST CANCER
     Dosage: DRUG REPORTED AS TAMOXIFENE SANDOZ.
     Route: 065
     Dates: start: 20110107, end: 20110318
  3. ZOMETA [Suspect]
     Dosage: DOSE: 4 MG/5ML,SOLUTION FOR INFUSION.
     Route: 042
     Dates: start: 20100816, end: 20110415
  4. TAXOL [Suspect]
     Indication: BREAST CANCER
     Dosage: DOSE: 100 MG/17ML,SOLUTION FOR INFUSION.
     Route: 065
     Dates: start: 20100701, end: 20101222

REACTIONS (1)
  - OSTEONECROSIS OF JAW [None]
